FAERS Safety Report 19179228 (Version 1)
Quarter: 2021Q2

REPORT INFORMATION
  Report Type: Spontaneous
  Country: US (occurrence: US)
  Receive Date: 20210423
  Receipt Date: 20210423
  Transmission Date: 20210717
  Serious: Yes (Hospitalization)
  Sender: FDA-Public Use
  Company Number: None

PATIENT
  Age: 56 Year
  Sex: Male
  Weight: 99.5 kg

DRUGS (3)
  1. RITUXIMAB (MOAB C2B8 ANTI CD20, CHIMERIC) [Suspect]
     Active Substance: RITUXIMAB
     Dates: end: 20210401
  2. CYTARABINE. [Suspect]
     Active Substance: CYTARABINE
     Dates: end: 20210402
  3. ACALABRUTINIB. [Suspect]
     Active Substance: ACALABRUTINIB
     Dates: end: 20210408

REACTIONS (3)
  - White blood cell count decreased [None]
  - Platelet count decreased [None]
  - Febrile neutropenia [None]

NARRATIVE: CASE EVENT DATE: 20210410
